FAERS Safety Report 5162394-1 (Version None)
Quarter: 2006Q4

REPORT INFORMATION
  Report Type: 
  Country: None (occurrence: None)
  Receive Date: 20061128
  Receipt Date: 20061128
  Transmission Date: 20070319
  Serious: Yes (Other)
  Sender: FDA-Public Use
  Company Number: None

PATIENT
  Age: 52 Year
  Sex: Male
  Weight: 102.6036 kg

DRUGS (9)
  1. ZOSYN [Suspect]
     Indication: ANTI-INFECTIVE THERAPY
     Dosage: IVPB
     Route: 042
     Dates: start: 20060629
  2. ASCORBIC ACID [Concomitant]
  3. CIPROFLOXACIN HCL [Concomitant]
  4. CODEINE 30 MG / ACETAMINOPHEN 300 MG [Concomitant]
  5. DICLOFENAC NA [Concomitant]
  6. LISINOPRIL [Concomitant]
  7. OMEPRAZOLE [Concomitant]
  8. SULFAMETHOXAZOLE 800/TRIMETH 160 MG [Concomitant]
  9. VITAMIN E [Concomitant]

REACTIONS (4)
  - CHEST DISCOMFORT [None]
  - FLUSHING [None]
  - INFUSION RELATED REACTION [None]
  - SIMILAR REACTION ON PREVIOUS EXPOSURE TO DRUG [None]
